FAERS Safety Report 19429453 (Version 1)
Quarter: 2021Q2

REPORT INFORMATION
  Report Type: Spontaneous
  Country: FR (occurrence: FR)
  Receive Date: 20210617
  Receipt Date: 20210617
  Transmission Date: 20210717
  Serious: Yes (Hospitalization, Other)
  Sender: FDA-Public Use
  Company Number: FR-ACCORD-228427

PATIENT
  Age: 63 Year
  Sex: Male
  Weight: 80 kg

DRUGS (4)
  1. HOLOXAN [Suspect]
     Active Substance: IFOSFAMIDE
     Indication: RICHTER^S SYNDROME
     Dosage: OVER 20H FROM D2
     Route: 042
     Dates: start: 20210413, end: 20210414
  2. CARBOPLATIN ACCORD [Suspect]
     Active Substance: CARBOPLATIN
     Indication: RICHTER^S SYNDROME
     Route: 042
     Dates: start: 20210413, end: 20210413
  3. GAZYVARO [Suspect]
     Active Substance: OBINUTUZUMAB
     Indication: RICHTER^S SYNDROME
     Route: 042
     Dates: start: 20210412, end: 20210412
  4. ETOPOSIDE MYLAN [Suspect]
     Active Substance: ETOPOSIDE
     Indication: RICHTER^S SYNDROME
     Route: 042
     Dates: start: 20210412, end: 20210414

REACTIONS (2)
  - Aphasia [Recovered/Resolved]
  - Encephalopathy [Recovered/Resolved]

NARRATIVE: CASE EVENT DATE: 20210416
